FAERS Safety Report 4999306-7 (Version None)
Quarter: 2006Q2

REPORT INFORMATION
  Report Type: 
  Country: None (occurrence: None)
  Receive Date: 20060509
  Receipt Date: 20060428
  Transmission Date: 20061013
  Serious: Yes (Other)
  Sender: FDA-Public Use
  Company Number: 2004085640

PATIENT
  Sex: Male
  Weight: 71.6683 kg

DRUGS (6)
  1. NICOTROL [Suspect]
     Indication: SMOKING CESSATION THERAPY
     Dosage: 1 CARTRIDGE 6 TIMES
     Dates: start: 20030101
  2. NICOTROL [Suspect]
  3. ASPIRIN [Concomitant]
  4. SIMVASTATIN [Concomitant]
  5. LOTREL [Concomitant]
  6. TAMSULOSIN HYDROCHLORIDE (TAMSULOSIN HYDROCHLORIDE) [Concomitant]

REACTIONS (2)
  - DRUG DEPENDENCE [None]
  - PERIPHERAL COLDNESS [None]
